FAERS Safety Report 7793829-3 (Version None)
Quarter: 2011Q4

REPORT INFORMATION
  Report Type: 
  Country: None (occurrence: None)
  Receive Date: 20111003
  Receipt Date: 20110929
  Transmission Date: 20120403
  Serious: Yes (Other)
  Sender: FDA-Public Use
  Company Number: JP-BRISTOL-MYERS SQUIBB COMPANY-15952914

PATIENT
  Age: 42 Year
  Sex: Male

DRUGS (15)
  1. RITONAVIR [Suspect]
     Indication: ANTIRETROVIRAL THERAPY
  2. DARUNAVIR [Suspect]
     Indication: ANTIRETROVIRAL THERAPY
  3. INDINIVIR SULFATE [Suspect]
     Indication: ANTIRETROVIRAL THERAPY
  4. NELFINAVIR MESYLATE [Suspect]
     Indication: ANTIRETROVIRAL THERAPY
  5. ZIDOVUDINE [Suspect]
     Indication: ANTIRETROVIRAL THERAPY
  6. RALTEGRAVIR [Suspect]
     Indication: ANTIRETROVIRAL THERAPY
  7. LOPINAVIR [Suspect]
     Indication: ANTIRETROVIRAL THERAPY
  8. EMTRICITABINE [Suspect]
     Indication: ANTIRETROVIRAL THERAPY
  9. ENFUVIRTIDE [Suspect]
     Indication: ANTIRETROVIRAL THERAPY
  10. ABACAVIR [Suspect]
     Indication: ANTIRETROVIRAL THERAPY
  11. LAMIVUDINE [Suspect]
     Indication: ANTIRETROVIRAL THERAPY
  12. EFAVIRENZ [Suspect]
     Indication: ANTIRETROVIRAL THERAPY
  13. TENOFOVIR DISOPROXIL FUMARATE [Suspect]
     Indication: ANTIRETROVIRAL THERAPY
  14. VIDEX [Suspect]
     Indication: ANTIRETROVIRAL THERAPY
     Route: 048
  15. ZERIT [Suspect]
     Indication: ANTIRETROVIRAL THERAPY
     Route: 048

REACTIONS (2)
  - DRUG RESISTANCE [None]
  - PSYCHIATRIC SYMPTOM [None]
